FAERS Safety Report 5174911-6 (Version None)
Quarter: 2006Q4

REPORT INFORMATION
  Report Type: 
  Country: None (occurrence: None)
  Receive Date: 20061206
  Receipt Date: 20061124
  Transmission Date: 20070319
  Serious: Yes (Hospitalization)
  Sender: FDA-Public Use
  Company Number: 2006145400

PATIENT
  Age: 58 Year
  Sex: Male
  Weight: 83 kg

DRUGS (10)
  1. SUTENT [Suspect]
     Indication: METASTATIC RENAL CELL CARCINOMA
     Dosage: 375 MG (12.5 MG, BID: EVERY DAY), ORAL
     Route: 048
     Dates: start: 20061024, end: 20061114
  2. LANSOPRAZOLE [Concomitant]
  3. TRAMADOL HCL [Concomitant]
  4. DOXAZOSIN MESYLATE [Concomitant]
  5. VALSARTAN [Concomitant]
  6. METHYLPREDNISOLONE [Concomitant]
  7. TETRACOSACTIDE (TETRACOSACTIDE) [Concomitant]
  8. DALTEPARIN SODIUM [Concomitant]
  9. FITOMENADION (PHYTOMENADIONE) [Concomitant]
  10. AMLODIPINE [Concomitant]

REACTIONS (3)
  - DISEASE PROGRESSION [None]
  - DYSPHAGIA [None]
  - ECCHYMOSIS [None]
